FAERS Safety Report 7039337-9 (Version None)
Quarter: 2010Q4

REPORT INFORMATION
  Report Type: 
  Country: None (occurrence: None)
  Receive Date: 20101012
  Receipt Date: 20100930
  Transmission Date: 20110411
  Serious: Yes (Other)
  Sender: FDA-Public Use
  Company Number: GB-PFIZER INC-2010031402

PATIENT
  Age: 20 Year
  Sex: Male

DRUGS (3)
  1. LUSTRAL [Suspect]
     Indication: ANXIETY
     Dosage: 200 MG, 1X/DAY
     Route: 048
     Dates: start: 20080101, end: 20100219
  2. LUSTRAL [Interacting]
     Indication: DEPRESSION
  3. RISPERDAL [Interacting]
     Indication: AGITATION
     Dosage: 0.5 MG, 2X/DAY
     Route: 048
     Dates: start: 20090201, end: 20100319

REACTIONS (2)
  - DRUG INTERACTION [None]
  - THROMBOCYTOPENIA [None]
